FAERS Safety Report 11752751 (Version 2)
Quarter: 2016Q1

REPORT INFORMATION
  Report Type: Spontaneous
  Country: US (occurrence: US)
  Receive Date: 20151119
  Receipt Date: 20160202
  Transmission Date: 20160525
  Serious: No
  Sender: FDA-Public Use
  Company Number: US-009507513-1511USA010189

PATIENT
  Sex: Female

DRUGS (2)
  1. KEYTRUDA [Suspect]
     Active Substance: PEMBROLIZUMAB
     Indication: NEOPLASM MALIGNANT
     Dosage: UNK
  2. IPILIMUMAB [Concomitant]
     Active Substance: IPILIMUMAB

REACTIONS (2)
  - Hypothyroidism [Unknown]
  - Thyroiditis acute [Unknown]
